FAERS Safety Report 7413619-0 (Version None)
Quarter: 2011Q2

REPORT INFORMATION
  Report Type: 
  Country: None (occurrence: None)
  Receive Date: 20110413
  Receipt Date: 20091006
  Transmission Date: 20111010
  Serious: Yes (Other)
  Sender: FDA-Public Use
  Company Number: GB-GENZYME-FABR-1001883

PATIENT
  Sex: Female
  Weight: 45.9 kg

DRUGS (9)
  1. ASPIRIN [Concomitant]
     Indication: COAGULOPATHY
     Dosage: 75 MG, UNK
  2. BISOPROLOL [Concomitant]
     Indication: CARDIAC DISORDER
     Dosage: 2.5 MG, UNK
  3. CARBAMAZEPINE [Concomitant]
     Dosage: UNK
     Dates: end: 20070101
  4. ERYTHROPOETIN [Concomitant]
     Indication: RENAL DISORDER
     Dosage: UNK
  5. FABRAZYME [Suspect]
     Dosage: 40 MG, Q2W
     Route: 042
     Dates: start: 20010619
  6. TACROLIMUS [Concomitant]
     Indication: PROPHYLAXIS AGAINST TRANSPLANT REJECTION
     Dosage: 2 MG, UNK
  7. CARBAMAZEPINE [Concomitant]
     Indication: PAIN IN EXTREMITY
     Dosage: UNK
     Dates: start: 20090101
  8. FABRAZYME [Suspect]
     Indication: FABRY'S DISEASE
     Dosage: 0.5 MG/KG, Q2W
     Route: 042
     Dates: start: 20090826
  9. PREDNISOLONE [Concomitant]
     Indication: PROPHYLAXIS AGAINST TRANSPLANT REJECTION
     Dosage: 5 MG, QOD

REACTIONS (1)
  - TRANSPLANT FAILURE [None]
